FAERS Safety Report 11884744 (Version 1)
Quarter: 2016Q1

REPORT INFORMATION
  Report Type: Spontaneous
  Country: IT (occurrence: IT)
  Receive Date: 20160104
  Receipt Date: 20160104
  Transmission Date: 20160526
  Serious: Yes (Other)
  Sender: FDA-Public Use
  Company Number: IT-ACCORD-035844

PATIENT
  Age: 63 Year
  Sex: Female
  Weight: 56 kg

DRUGS (3)
  1. AVASTIN [Suspect]
     Active Substance: BEVACIZUMAB
     Indication: COLON CANCER
     Dosage: STRENGTH: 400 MG?MAH: ROCHE REGISTRATION LIMITED
     Route: 042
     Dates: start: 20151027
  2. IRINOTECAN HOSPIRA [Suspect]
     Active Substance: IRINOTECAN
     Indication: COLON CANCER
     Dosage: STRENGTH: 20 MG/ML
     Route: 042
     Dates: start: 20151027
  3. FLUOROURACIL ACCORD [Suspect]
     Active Substance: FLUOROURACIL
     Indication: COLON CANCER
     Dosage: STRENGTH: 50 MG/ML
     Route: 042
     Dates: start: 20151027

REACTIONS (2)
  - Blood pressure increased [Not Recovered/Not Resolved]
  - Neutropenia [Not Recovered/Not Resolved]

NARRATIVE: CASE EVENT DATE: 20151111
